FAERS Safety Report 9028604 (Version 1)
Quarter: 2013Q1

REPORT INFORMATION
  Report Type: Spontaneous
  Country: BR (occurrence: BR)
  Receive Date: 20130124
  Receipt Date: 20130124
  Transmission Date: 20140127
  Serious: Yes (Other)
  Sender: FDA-Public Use
  Company Number: BR-ROCHE-1182100

PATIENT
  Sex: Male

DRUGS (7)
  1. XOLAIR [Suspect]
     Indication: PRODUCT USED FOR UNKNOWN INDICATION
     Route: 065
  2. CALCORT [Concomitant]
  3. OMEPRAZOLE [Concomitant]
  4. METFORMIN [Concomitant]
     Route: 065
  5. TORLOS [Concomitant]
  6. CLORANA [Concomitant]
  7. SERETIDE [Concomitant]

REACTIONS (6)
  - Hiatus hernia [Recovered/Resolved]
  - Cataract [Recovered/Resolved]
  - Pain in extremity [Recovered/Resolved]
  - Gastrooesophageal reflux disease [Recovered/Resolved]
  - Malaise [Recovered/Resolved]
  - Drug ineffective [Unknown]
